FAERS Safety Report 5657772-8 (Version None)
Quarter: 2008Q1

REPORT INFORMATION
  Report Type: 
  Country: None (occurrence: None)
  Receive Date: 20080310
  Receipt Date: 20080222
  Transmission Date: 20080703
  Serious: Yes (Hospitalization)
  Sender: FDA-Public Use
  Company Number: US-ASTRAZENECA-2006UW26574

PATIENT
  Age: 28719 Day
  Sex: Female
  Weight: 117.3 kg

DRUGS (6)
  1. ZESTRIL [Suspect]
     Indication: HYPERTENSION
     Route: 048
     Dates: start: 20000101, end: 20060401
  2. TIAZAC [Suspect]
     Indication: HYPERTENSION
     Dates: start: 20060101, end: 20060401
  3. DILTIAZEM HCL [Concomitant]
  4. PROPRANOLOL [Concomitant]
  5. LASIX [Concomitant]
     Indication: FLUID RETENTION
  6. SIMVASTATIN [Concomitant]
     Indication: BLOOD CHOLESTEROL

REACTIONS (1)
  - HYPERSENSITIVITY [None]
